FAERS Safety Report 4883280-8 (Version None)
Quarter: 2006Q1

REPORT INFORMATION
  Report Type: 
  Country: None (occurrence: None)
  Receive Date: 20060117
  Receipt Date: 20060117
  Transmission Date: 20060701
  Serious: Yes (Life-Threatening, Hospitalization)
  Sender: FDA-Public Use
  Company Number: None

PATIENT
  Age: 36 Year
  Sex: Female
  Weight: 63.5036 kg

DRUGS (3)
  1. YASMIN [Suspect]
     Indication: CONTRACEPTION
     Dosage: ONE PILL ONCE A DAY PO
     Route: 048
     Dates: start: 20041001, end: 20051226
  2. YASMIN [Suspect]
     Indication: MENSTRUATION IRREGULAR
     Dosage: ONE PILL ONCE A DAY PO
     Route: 048
     Dates: start: 20041001, end: 20051226
  3. ASPIRIN [Concomitant]

REACTIONS (12)
  - CEREBROVASCULAR ACCIDENT [None]
  - CHEST PAIN [None]
  - EATING DISORDER [None]
  - GRIMACING [None]
  - HEADACHE [None]
  - HEMIPARESIS [None]
  - HYPOAESTHESIA [None]
  - MEMORY IMPAIRMENT [None]
  - MUSCLE SPASMS [None]
  - PALPITATIONS [None]
  - SHOULDER PAIN [None]
  - SPEECH DISORDER [None]
